FAERS Safety Report 4771016-0 (Version None)
Quarter: 2005Q3

REPORT INFORMATION
  Report Type: 
  Country: None (occurrence: None)
  Receive Date: 20050915
  Receipt Date: 20050907
  Transmission Date: 20060218
  Serious: Yes (Hospitalization)
  Sender: FDA-Public Use
  Company Number: US-KINGPHARMUSA00001-K200501180

PATIENT
  Age: 50 Year
  Sex: Female

DRUGS (1)
  1. SONATA [Suspect]
     Dosage: 25-50 MG, SINGLE
     Route: 048
     Dates: start: 20050831, end: 20050831

REACTIONS (3)
  - FATIGUE [None]
  - INTENTIONAL MISUSE [None]
  - OVERDOSE [None]
